FAERS Safety Report 25037247 (Version 33)
Quarter: 2025Q4

REPORT INFORMATION
  Report Type: Report from Study
  Country: US (occurrence: US)
  Receive Date: 20250304
  Receipt Date: 20251217
  Transmission Date: 20260118
  Serious: Yes (Hospitalization, Other)
  Sender: PFIZER
  Company Number: US-PFIZER INC-PV202500023838

PATIENT
  Age: 37 Year
  Sex: Female

DRUGS (1)
  1. XELJANZ XR [Suspect]
     Active Substance: TOFACITINIB CITRATE
     Indication: Rheumatoid arthritis
     Dosage: 11 MG
     Route: 048
     Dates: start: 2018

REACTIONS (53)
  - COVID-19 [Recovering/Resolving]
  - Autoimmune disorder [Not Recovered/Not Resolved]
  - Postural orthostatic tachycardia syndrome [Unknown]
  - Illness [Recovering/Resolving]
  - Immunodeficiency [Unknown]
  - Pneumonia [Recovering/Resolving]
  - Joint dislocation [Recovering/Resolving]
  - Pain in extremity [Unknown]
  - Hallucination, olfactory [Not Recovered/Not Resolved]
  - Condition aggravated [Not Recovered/Not Resolved]
  - Rheumatoid arthritis [Unknown]
  - Dystonia [Unknown]
  - Bone contusion [Not Recovered/Not Resolved]
  - Migraine [Not Recovered/Not Resolved]
  - Phantosmia [Not Recovered/Not Resolved]
  - Inflammation [Unknown]
  - Dehydration [Unknown]
  - White blood cell count abnormal [Not Recovered/Not Resolved]
  - Asthma [Not Recovered/Not Resolved]
  - Malaise [Not Recovered/Not Resolved]
  - Frustration tolerance decreased [Not Recovered/Not Resolved]
  - Temporomandibular pain and dysfunction syndrome [Unknown]
  - Alopecia [Unknown]
  - Anxiety [Unknown]
  - Muscle tightness [Unknown]
  - Blood pressure increased [Unknown]
  - Depressed mood [Unknown]
  - Facial pain [Not Recovered/Not Resolved]
  - Pleurisy [Recovered/Resolved]
  - Costochondritis [Unknown]
  - Feeling abnormal [Not Recovered/Not Resolved]
  - Blood test abnormal [Not Recovered/Not Resolved]
  - Musculoskeletal chest pain [Not Recovered/Not Resolved]
  - Limb injury [Unknown]
  - Peripheral swelling [Unknown]
  - Fatigue [Not Recovered/Not Resolved]
  - Nausea [Not Recovered/Not Resolved]
  - Upper respiratory tract infection [Unknown]
  - Nasopharyngitis [Unknown]
  - Influenza [Not Recovered/Not Resolved]
  - Bronchitis [Recovering/Resolving]
  - Eye pruritus [Unknown]
  - Abdominal pain upper [Unknown]
  - Stress [Unknown]
  - Muscle spasms [Unknown]
  - Malaise [Unknown]
  - Sinus disorder [Not Recovered/Not Resolved]
  - COVID-19 [Unknown]
  - Hypersensitivity [Not Recovered/Not Resolved]
  - Eye swelling [Not Recovered/Not Resolved]
  - Sinusitis [Unknown]
  - Gastrointestinal disorder [Unknown]
  - Osteoarthritis [Unknown]

NARRATIVE: CASE EVENT DATE: 20200101
